FAERS Safety Report 18252294 (Version 1)
Quarter: 2020Q3

REPORT INFORMATION
  Report Type: Spontaneous
  Country: US (occurrence: US)
  Receive Date: 20200910
  Receipt Date: 20200910
  Transmission Date: 20201103
  Serious: No
  Sender: FDA-Public Use
  Company Number: US-FARMAPROD-202006-0758

PATIENT
  Sex: Female

DRUGS (9)
  1. CYRAMZA [Concomitant]
     Active Substance: RAMUCIRUMAB
     Dosage: 100MG/10ML VIAL
  2. TRIFLURIDINE. [Concomitant]
     Active Substance: TRIFLURIDINE
  3. SOOTHE [Concomitant]
     Active Substance: BISMUTH SUBSALICYLATE\GLYCERIN\PROPYLENE GLYCOL
     Dosage: 262MG/15ML
  4. OXERVATE [Suspect]
     Active Substance: CENEGERMIN-BKBJ
     Indication: NEUROTROPHIC KERATOPATHY
     Route: 047
     Dates: start: 20200512
  5. ABRAXANE [Concomitant]
     Active Substance: PACLITAXEL
     Dosage: VIAL
  6. AMLODIPINE BESILATE [Concomitant]
     Active Substance: AMLODIPINE BESYLATE
  7. ZOFRAN [Concomitant]
     Active Substance: ONDANSETRON HYDROCHLORIDE
  8. ATIVAN [Concomitant]
     Active Substance: LORAZEPAM
  9. OMEPRAZOLE. [Concomitant]
     Active Substance: OMEPRAZOLE

REACTIONS (2)
  - Viral infection [Unknown]
  - Eye discharge [Unknown]
